FAERS Safety Report 24025478 (Version 2)
Quarter: 2024Q3

REPORT INFORMATION
  Report Type: Report from Study
  Country: CN (occurrence: CN)
  Receive Date: 20240628
  Receipt Date: 20240710
  Transmission Date: 20241017
  Serious: No
  Sender: ROCHE
  Company Number: CN-ROCHE-3419180

PATIENT
  Age: 53 Year
  Sex: Female

DRUGS (1)
  1. ALECENSA [Suspect]
     Active Substance: ALECTINIB HYDROCHLORIDE
     Indication: Lung neoplasm malignant
     Dosage: CAPSULES , 150 MG * 56 CAPSULES * 4 SMALL BOXES
     Route: 048
     Dates: start: 20220418

REACTIONS (1)
  - Gingival disorder [Recovering/Resolving]

NARRATIVE: CASE EVENT DATE: 20230901
